FAERS Safety Report 5023145-4 (Version None)
Quarter: 2006Q2

REPORT INFORMATION
  Report Type: 
  Country: None (occurrence: None)
  Receive Date: 20060612
  Receipt Date: 20060606
  Transmission Date: 20061013
  Serious: Yes (Disabling)
  Sender: FDA-Public Use
  Company Number: FR-JNJFOC-20060601069

PATIENT
  Age: 70 Year
  Sex: Female

DRUGS (3)
  1. TAVANIC [Suspect]
     Indication: PNEUMONIA
     Route: 048
     Dates: start: 20060101, end: 20060301
  2. AUGMENTIN '125' [Suspect]
     Route: 048
     Dates: start: 20060101, end: 20060308
  3. AUGMENTIN '125' [Suspect]
     Indication: PNEUMONIA
     Route: 048
     Dates: start: 20060101, end: 20060308

REACTIONS (2)
  - HEPATIC NECROSIS [None]
  - HEPATITIS CHOLESTATIC [None]
